FAERS Safety Report 7998590-5 (Version None)
Quarter: 2011Q4

REPORT INFORMATION
  Report Type: 
  Country: None (occurrence: None)
  Receive Date: 20111221
  Receipt Date: 20111215
  Transmission Date: 20120403
  Serious: Yes (Hospitalization)
  Sender: FDA-Public Use
  Company Number: US-ACTELION-A-NJ2011-54234

PATIENT

DRUGS (3)
  1. TRACLEER [Suspect]
     Indication: PULMONARY ARTERIAL HYPERTENSION
     Dosage: UNK
     Route: 048
     Dates: start: 20020926
  2. ADCIRCA [Concomitant]
  3. COUMADIN [Concomitant]

REACTIONS (5)
  - FLANK PAIN [None]
  - POOR QUALITY SLEEP [None]
  - GOUT [None]
  - DYSPNOEA [None]
  - BACK PAIN [None]
